FAERS Safety Report 9551091 (Version 1)
Quarter: 2013Q3

REPORT INFORMATION
  Report Type: Spontaneous
  Country: FR (occurrence: FR)
  Receive Date: 20130925
  Receipt Date: 20130925
  Transmission Date: 20140515
  Serious: Yes (Other)
  Sender: FDA-Public Use
  Company Number: FR-AMGEN-FRASP2013067185

PATIENT
  Sex: Female

DRUGS (1)
  1. XGEVA [Suspect]
     Indication: METASTASES TO BONE
     Route: 065

REACTIONS (1)
  - Renal failure [Unknown]
